FAERS Safety Report 14958597 (Version 11)
Quarter: 2019Q1

REPORT INFORMATION
  Report Type: Spontaneous
  Country: CA (occurrence: CA)
  Receive Date: 20180531
  Receipt Date: 20190215
  Transmission Date: 20190417
  Serious: Yes (Other)
  Sender: FDA-Public Use
  Company Number: CA-CELLTRION INC.-2018CA020192

PATIENT

DRUGS (12)
  1. INFLECTRA [Suspect]
     Active Substance: INFLIXIMAB-DYYB
     Dosage: 400 MG, CYCLIC (EVERY 0, 2, 6 WEEKS, THEN EVERY 8 WEEKS)
     Route: 042
     Dates: start: 20180402, end: 20180402
  2. INFLECTRA [Suspect]
     Active Substance: INFLIXIMAB-DYYB
     Dosage: 400 MG, CYCLIC, EVERY 6 WEEKS
     Route: 042
     Dates: start: 20180518, end: 20180518
  3. INFLECTRA [Suspect]
     Active Substance: INFLIXIMAB-DYYB
     Dosage: 400 MG, CYCLIC, EVERY 6 WEEKS
     Route: 042
     Dates: start: 20180518, end: 20180518
  4. SULFATRIM [Concomitant]
     Active Substance: SULFAMETHOXAZOLE\TRIMETHOPRIM
     Indication: COLITIS ULCERATIVE
     Dosage: ONE TABLET, TID FOR ONE MONTH
     Dates: start: 20180302
  5. INFLECTRA [Suspect]
     Active Substance: INFLIXIMAB-DYYB
     Dosage: 800 MG, CYCLIC, EVERY 6 WEEKS
     Route: 042
     Dates: start: 20181123
  6. INFLECTRA [Suspect]
     Active Substance: INFLIXIMAB-DYYB
     Dosage: 400 MG, CYCLIC, EVERY 6 WEEKS
     Route: 042
     Dates: start: 20180604, end: 20180604
  7. INFLECTRA [Suspect]
     Active Substance: INFLIXIMAB-DYYB
     Indication: COLITIS ULCERATIVE
     Dosage: 400 MG, CYCLIC, (EVERY 0, 2, 6 WEEKS, THEN EVERY 8 WEEKS)
     Route: 042
     Dates: start: 20180227
  8. INFLECTRA [Suspect]
     Active Substance: INFLIXIMAB-DYYB
     Dosage: 800 MG, CYCLIC, EVERY 6 WEEKS
     Route: 042
     Dates: start: 20180628, end: 20180912
  9. INFLECTRA [Suspect]
     Active Substance: INFLIXIMAB-DYYB
     Dosage: 800 MG, CYCLIC, (EVERY 5 WEEKS)
     Route: 042
     Dates: start: 20181019
  10. PREDNISONE. [Concomitant]
     Active Substance: PREDNISONE
     Dosage: UNK
  11. AZATHIOPRINE. [Concomitant]
     Active Substance: AZATHIOPRINE
     Dosage: UNK
  12. INFLECTRA [Suspect]
     Active Substance: INFLIXIMAB-DYYB
     Dosage: UNK
     Route: 042
     Dates: start: 20190201

REACTIONS (5)
  - Product use issue [Unknown]
  - Blood pressure fluctuation [Unknown]
  - Product use issue [Unknown]
  - Haemorrhage [Recovered/Resolved]
  - Condition aggravated [Recovered/Resolved]

NARRATIVE: CASE EVENT DATE: 20180402
